FAERS Safety Report 4713034-4 (Version None)
Quarter: 2005Q3

REPORT INFORMATION
  Report Type: 
  Country: None (occurrence: None)
  Receive Date: 20050711
  Receipt Date: 20050628
  Transmission Date: 20060218
  Serious: Yes (Death)
  Sender: FDA-Public Use
  Company Number: 2005089610

PATIENT
  Age: 72 Year
  Sex: Male

DRUGS (2)
  1. SOLU-MEDROL [Suspect]
     Indication: GLOMERULONEPHRITIS
     Dosage: 1 GRAM (1 D) INTRAVENOUS
     Route: 042
     Dates: start: 20040615
  2. VANCOMYCIN [Concomitant]

REACTIONS (4)
  - HAEMODIALYSIS [None]
  - HYPOXIA [None]
  - PULMONARY ALVEOLAR HAEMORRHAGE [None]
  - THERAPY NON-RESPONDER [None]
